FAERS Safety Report 8831647 (Version 2)
Quarter: 2012Q4

REPORT INFORMATION
  Report Type: 
  Country: None (occurrence: None)
  Receive Date: 20121009
  Receipt Date: 20121101
  Transmission Date: 20130627
  Serious: Yes (Other)
  Sender: FDA-Public Use
  Company Number: RS-GLAXOSMITHKLINE-B0836085A

PATIENT
  Age: 81 None
  Sex: Female

DRUGS (9)
  1. REQUIP-MODUTAB [Suspect]
     Indication: PARKINSON^S DISEASE
     Dosage: 2MG Per day
     Route: 048
  2. REQUIP [Suspect]
     Indication: PARKINSON^S DISEASE
     Route: 065
  3. CLARITIN [Concomitant]
  4. BENSEDIN [Concomitant]
     Dosage: 5MG per day
  5. CARDIOPIRIN [Concomitant]
  6. RANISAN [Concomitant]
  7. METOPROLOL [Concomitant]
  8. ENALAPRIL MALEATE + HYDROCHLOROTHIAZIDE [Concomitant]
  9. GLUFORMIN [Concomitant]
     Dosage: 50MG Twice per day

REACTIONS (3)
  - Parkinson^s disease [Unknown]
  - Confusional state [Recovered/Resolved]
  - Aggression [Recovered/Resolved]
